FAERS Safety Report 7288142-7 (Version None)
Quarter: 2011Q1

REPORT INFORMATION
  Report Type: 
  Country: None (occurrence: None)
  Receive Date: 20110211
  Receipt Date: 20110203
  Transmission Date: 20110831
  Serious: Yes (Other)
  Sender: FDA-Public Use
  Company Number: ES-JNJFOC-20081204577

PATIENT
  Sex: Male

DRUGS (3)
  1. ABILIFY [Concomitant]
     Indication: SCHIZOPHRENIA
     Route: 048
  2. LEPONEX [Concomitant]
     Route: 065
  3. RISPERDAL CONSTA [Suspect]
     Indication: SCHIZOPHRENIA
     Route: 030

REACTIONS (1)
  - BLOOD CREATINE PHOSPHOKINASE INCREASED [None]
